FAERS Safety Report 5082495-6 (Version None)
Quarter: 2006Q3

REPORT INFORMATION
  Report Type: 
  Country: None (occurrence: None)
  Receive Date: 20060817
  Receipt Date: 20060413
  Transmission Date: 20061208
  Serious: Yes (Hospitalization)
  Sender: FDA-Public Use
  Company Number: FR-BRISTOL-MYERS SQUIBB COMPANY-13346911

PATIENT
  Age: 41 Year
  Sex: Female

DRUGS (5)
  1. VIDEX EC [Suspect]
     Indication: HIV INFECTION
     Route: 048
     Dates: start: 20030615, end: 20060322
  2. VIREAD [Suspect]
     Dates: start: 20030615, end: 20060322
  3. VIRAMUNE [Suspect]
     Dates: end: 20060322
  4. ZITHROMAX [Concomitant]
  5. VFEND [Concomitant]

REACTIONS (1)
  - IMPAIRED GASTRIC EMPTYING [None]
